FAERS Safety Report 16635815 (Version 1)
Quarter: 2019Q3

REPORT INFORMATION
  Report Type: Spontaneous
  Country: US (occurrence: US)
  Receive Date: 20190726
  Receipt Date: 20190726
  Transmission Date: 20191004
  Serious: No
  Sender: FDA-Public Use
  Company Number: US-BAUSCH-BL-2019-019818

PATIENT
  Age: 20 Year
  Sex: Male

DRUGS (1)
  1. RETIN-A MICRO [Suspect]
     Active Substance: TRETINOIN
     Indication: ACNE
     Route: 061

REACTIONS (1)
  - Facial pain [Recovered/Resolved]
